FAERS Safety Report 5399783-6 (Version None)
Quarter: 2007Q3

REPORT INFORMATION
  Report Type: 
  Country: None (occurrence: None)
  Receive Date: 20070730
  Receipt Date: 20070717
  Transmission Date: 20080115
  Serious: Yes (Hospitalization)
  Sender: FDA-Public Use
  Company Number: DE-JNJFOC-20070703761

PATIENT
  Age: 4 Decade
  Sex: Male

DRUGS (6)
  1. REMICADE [Suspect]
     Route: 042
  2. REMICADE [Suspect]
     Dosage: DOSE= 400MG/1500MG
     Route: 042
  3. REMICADE [Suspect]
     Indication: DRUG USE FOR UNKNOWN INDICATION
     Route: 042
  4. MTX [Concomitant]
  5. MTX [Concomitant]
  6. MTX [Concomitant]

REACTIONS (1)
  - INTRAOCULAR LENS IMPLANT [None]
